FAERS Safety Report 12502714 (Version 1)
Quarter: 2016Q2

REPORT INFORMATION
  Report Type: Spontaneous
  Country: US (occurrence: US)
  Receive Date: 20160628
  Receipt Date: 20160628
  Transmission Date: 20160815
  Serious: Yes (Hospitalization)
  Sender: FDA-Public Use
  Company Number: US-BEH-2016070587

PATIENT
  Age: 27 Year
  Sex: Male
  Weight: 102.45 kg

DRUGS (6)
  1. TYLENOL [Concomitant]
     Active Substance: ACETAMINOPHEN
  2. HEPARIN [Concomitant]
     Active Substance: HEPARIN SODIUM
  3. BERINERT [Suspect]
     Active Substance: HUMAN C1-ESTERASE INHIBITOR
     Indication: HEREDITARY ANGIOEDEMA
     Dosage: 2500 IU, PRN
     Route: 042
     Dates: start: 20110217
  4. SODIUM CHLORIDE + DEXTROSE [Concomitant]
  5. EPIPEN [Concomitant]
     Active Substance: EPINEPHRINE
  6. STERILE WATER [Concomitant]
     Active Substance: WATER

REACTIONS (1)
  - Hereditary angioedema [Recovered/Resolved]

NARRATIVE: CASE EVENT DATE: 20160622
